FAERS Safety Report 7070287-8 (Version None)
Quarter: 2010Q4

REPORT INFORMATION
  Report Type: 
  Country: None (occurrence: None)
  Receive Date: 20101028
  Receipt Date: 20100930
  Transmission Date: 20110411
  Serious: No
  Sender: FDA-Public Use
  Company Number: US-WYE-H17923910

PATIENT
  Sex: Female
  Weight: 56.75 kg

DRUGS (4)
  1. PROTONIX [Suspect]
     Indication: GASTROOESOPHAGEAL REFLUX DISEASE
     Route: 048
     Dates: start: 20090501, end: 20100901
  2. PROTONIX [Suspect]
     Indication: HIATUS HERNIA
  3. CALCIUM PHOSPHATE/CALCIUM SODIUM LACTATE/ERGOCALCIFEROL [Concomitant]
  4. ALENDRONATE SODIUM [Concomitant]
     Dosage: UNKNOWN

REACTIONS (1)
  - EPISTAXIS [None]
